FAERS Safety Report 22060877 (Version 1)
Quarter: 2023Q1

REPORT INFORMATION
  Report Type: Spontaneous
  Country: US (occurrence: US)
  Receive Date: 20230303
  Receipt Date: 20230303
  Transmission Date: 20230418
  Serious: No
  Sender: FDA-Public Use
  Company Number: US-EPIHEALTH-2022-US-014973

PATIENT
  Age: 20 Year
  Sex: Male
  Weight: 62.14 kg

DRUGS (3)
  1. RHOFADE [Suspect]
     Active Substance: OXYMETAZOLINE HYDROCHLORIDE
     Indication: Rosacea
     Dosage: ONCE DAILY
     Route: 061
     Dates: start: 20211201
  2. ENBREL [Concomitant]
     Active Substance: ETANERCEPT
  3. certirizine [Concomitant]

REACTIONS (1)
  - Application site dryness [Not Recovered/Not Resolved]

NARRATIVE: CASE EVENT DATE: 20211201
